FAERS Safety Report 4551480-2 (Version None)
Quarter: 2005Q1

REPORT INFORMATION
  Report Type: 
  Country: None (occurrence: None)
  Receive Date: 20050110
  Receipt Date: 20050103
  Transmission Date: 20050727
  Serious: Yes (Hospitalization)
  Sender: FDA-Public Use
  Company Number: 2005-123891-NL

PATIENT
  Age: 49 Year
  Sex: Female

DRUGS (2)
  1. MIRTAZAPINE [Suspect]
     Dosage: 15 MG BID ORAL
     Route: 048
     Dates: start: 20040825, end: 20041118
  2. CLORAZEPATE DIPOTASSIUM [Concomitant]

REACTIONS (3)
  - HYPONATRAEMIA [None]
  - STATUS EPILEPTICUS [None]
  - WEIGHT INCREASED [None]
